FAERS Safety Report 24391940 (Version 3)
Quarter: 2025Q1

REPORT INFORMATION
  Report Type: Spontaneous
  Country: US (occurrence: US)
  Receive Date: 20241003
  Receipt Date: 20250331
  Transmission Date: 20250408
  Serious: No
  Sender: PFIZER
  Company Number: US-PFIZER INC-PV202400128483

PATIENT
  Age: 32 Year
  Sex: Female

DRUGS (1)
  1. XELJANZ XR [Suspect]
     Active Substance: TOFACITINIB CITRATE

REACTIONS (4)
  - Fatigue [Unknown]
  - Feeling hot [Unknown]
  - Depression [Unknown]
  - COVID-19 [Unknown]
